FAERS Safety Report 16538310 (Version 2)
Quarter: 2019Q3

REPORT INFORMATION
  Report Type: Spontaneous
  Country: JP (occurrence: JP)
  Receive Date: 20190708
  Receipt Date: 20190731
  Transmission Date: 20191004
  Serious: Yes (Hospitalization, Other)
  Sender: FDA-Public Use
  Company Number: JP-ROCHE-2350223

PATIENT
  Age: 67 Year
  Sex: Male

DRUGS (8)
  1. DOXORUBICIN HYDROCHLORIDE. [Concomitant]
     Active Substance: DOXORUBICIN HYDROCHLORIDE
  2. PREDNISOLONE. [Concomitant]
     Active Substance: PREDNISOLONE
  3. GEMCITABINE. [Concomitant]
     Active Substance: GEMCITABINE
  4. DEXAMETHASONE SODIUM PHOSPHATE. [Concomitant]
     Active Substance: DEXAMETHASONE SODIUM PHOSPHATE
  5. RITUXAN [Suspect]
     Active Substance: RITUXIMAB
     Indication: DIFFUSE LARGE B-CELL LYMPHOMA
     Route: 041
  6. CYCLOPHOSPHAMIDE. [Concomitant]
     Active Substance: CYCLOPHOSPHAMIDE
  7. VINCRISTINE SULFATE. [Concomitant]
     Active Substance: VINCRISTINE SULFATE
  8. CARBOPLATIN. [Concomitant]
     Active Substance: CARBOPLATIN

REACTIONS (2)
  - Agranulocytosis [Recovered/Resolved]
  - Cardiac dysfunction [Unknown]
